FAERS Safety Report 13225763 (Version 2)
Quarter: 2018Q1

REPORT INFORMATION
  Report Type: Other
  Country: US (occurrence: US)
  Receive Date: 20170213
  Receipt Date: 20180130
  Transmission Date: 20180508
  Serious: No
  Sender: FDA-Public Use
  Company Number: US-ACORDA-ACO_133100_2017

PATIENT
  Sex: Female

DRUGS (7)
  1. TECFIDERA [Concomitant]
     Active Substance: DIMETHYL FUMARATE
     Indication: MULTIPLE SCLEROSIS
     Dosage: UNK
     Route: 048
  2. AMPYRA [Suspect]
     Active Substance: DALFAMPRIDINE
     Indication: GAIT DISTURBANCE
     Dosage: 10 MG, Q 12 HRS
     Route: 048
     Dates: start: 201610
  3. CELECOXIB. [Concomitant]
     Active Substance: CELECOXIB
     Indication: PRODUCT USED FOR UNKNOWN INDICATION
     Dosage: UNK
     Route: 065
  4. BACLOFEN. [Concomitant]
     Active Substance: BACLOFEN
     Indication: PRODUCT USED FOR UNKNOWN INDICATION
     Dosage: UNK
     Route: 065
  5. AMPYRA [Suspect]
     Active Substance: DALFAMPRIDINE
     Dosage: 5 MG, BID
     Route: 048
     Dates: start: 20170403
  6. AMPYRA [Suspect]
     Active Substance: DALFAMPRIDINE
     Dosage: 5 MG, QD
     Route: 048
     Dates: start: 2017, end: 20170403
  7. TIZANIDINE. [Suspect]
     Active Substance: TIZANIDINE
     Indication: PRODUCT USED FOR UNKNOWN INDICATION
     Dosage: UNK
     Route: 048

REACTIONS (7)
  - Malaise [Recovered/Resolved]
  - Off label use [Unknown]
  - Memory impairment [Unknown]
  - Fatigue [Recovered/Resolved]
  - Dizziness [Recovered/Resolved]
  - Asthenia [Recovered/Resolved]
  - Adverse drug reaction [Unknown]
